FAERS Safety Report 10007607 (Version 1)
Quarter: 2014Q1

REPORT INFORMATION
  Report Type: Spontaneous
  Country: US (occurrence: None)
  Receive Date: 20140228
  Receipt Date: 20140228
  Transmission Date: 20141002
  Serious: Yes (Other)
  Sender: FDA-Public Use
  Company Number: 225072

PATIENT
  Age: 66 Year
  Sex: Female

DRUGS (4)
  1. PICATO [Suspect]
     Indication: TREATMENT NONCOMPLIANCE
     Route: 048
     Dates: start: 20131128, end: 20131128
  2. FLUCICASONE NASAL SPRAY (FLUTICASONE) [Concomitant]
  3. FLUTICASONE PROPIONATE (FLUTICASONE PROPIONATE) (FLUTICASONE PROPIONATE) [Concomitant]
  4. VITAMINS (VITAMINS NOS) [Concomitant]

REACTIONS (2)
  - Dysgeusia [None]
  - Accidental exposure to product [None]
